FAERS Safety Report 22248632 (Version 1)
Quarter: 2023Q2

REPORT INFORMATION
  Report Type: Spontaneous
  Country: US (occurrence: None)
  Receive Date: 20230425
  Receipt Date: 20230425
  Transmission Date: 20230721
  Serious: No
  Sender: FDA-Public Use
  Company Number: 2023A095282

PATIENT
  Age: 74 Year

DRUGS (2)
  1. BYDUREON BCISE [Suspect]
     Active Substance: EXENATIDE
     Route: 058
  2. BYDUREON [Suspect]
     Active Substance: EXENATIDE
     Route: 058

REACTIONS (4)
  - Device malfunction [Unknown]
  - Injection site haemorrhage [Unknown]
  - Wrong technique in device usage process [Unknown]
  - Device leakage [Unknown]

NARRATIVE: CASE EVENT DATE: 20230421
